FAERS Safety Report 10430097 (Version 1)
Quarter: 2014Q3

REPORT INFORMATION
  Report Type: Report from Study
  Country: US (occurrence: US)
  Receive Date: 20140904
  Receipt Date: 20140904
  Transmission Date: 20150326
  Serious: Yes (Other)
  Sender: FDA-Public Use
  Company Number: PHEH2014US017398

PATIENT
  Age: 58 Year
  Sex: Female

DRUGS (1)
  1. GILENYA [Suspect]
     Active Substance: FINGOLIMOD HYDROCHLORIDE
     Indication: MULTIPLE SCLEROSIS
     Dosage: 0.5 MG, QD
     Route: 048

REACTIONS (19)
  - Monocyte count increased [Unknown]
  - Neutrophil count decreased [Unknown]
  - Open angle glaucoma [Unknown]
  - Glucose tolerance impaired [Unknown]
  - Hypochromasia [Unknown]
  - Melanosis [Unknown]
  - Blood potassium decreased [Unknown]
  - Macrocytosis [Unknown]
  - Migraine [Unknown]
  - Vision blurred [Unknown]
  - Hypertension [Unknown]
  - White blood cell count decreased [Unknown]
  - Lymphocyte count decreased [Unknown]
  - Cataract nuclear [Unknown]
  - Anion gap increased [Unknown]
  - Diplopia [Unknown]
  - Optic atrophy [Unknown]
  - Intraocular pressure increased [Unknown]
  - Red blood cell morphology abnormal [Unknown]

NARRATIVE: CASE EVENT DATE: 20130801
